FAERS Safety Report 18761035 (Version 1)
Quarter: 2021Q1

REPORT INFORMATION
  Report Type: Spontaneous
  Country: FR (occurrence: FR)
  Receive Date: 20210120
  Receipt Date: 20210120
  Transmission Date: 20210419
  Serious: Yes (Death)
  Sender: FDA-Public Use
  Company Number: FR-ALVOGEN-2021-ALVOGEN-116185

PATIENT
  Age: 57 Year
  Sex: Male

DRUGS (3)
  1. BROMAZEPAM [Suspect]
     Active Substance: BROMAZEPAM
     Indication: PRODUCT USED FOR UNKNOWN INDICATION
     Dosage: 140 NG/ML IN PERIPHERAL BLOOD
  2. SILDENAFIL. [Suspect]
     Active Substance: SILDENAFIL
     Indication: PRODUCT USED FOR UNKNOWN INDICATION
  3. NEVIRAPINE. [Suspect]
     Active Substance: NEVIRAPINE
     Indication: ANTIRETROVIRAL THERAPY

REACTIONS (8)
  - Left ventricular dilatation [Fatal]
  - Overdose [Fatal]
  - Drug abuse [Fatal]
  - Toxicity to various agents [Fatal]
  - Conjunctival hyperaemia [Fatal]
  - Hepatic steatosis [Fatal]
  - Hypoxia [Fatal]
  - Congestive hepatopathy [Fatal]
